FAERS Safety Report 4293137-1 (Version None)
Quarter: 2004Q1

REPORT INFORMATION
  Report Type: 
  Country: None (occurrence: None)
  Receive Date: 20040210
  Receipt Date: 20040129
  Transmission Date: 20041129
  Serious: Yes (Hospitalization, Other)
  Sender: FDA-Public Use
  Company Number: FR-JNJFOC-20030702962

PATIENT
  Age: 28 Year
  Sex: Female

DRUGS (11)
  1. INFLIXIMAB (INFLIXIMAB, RECOMBINANT) [Suspect]
     Indication: JUVENILE ARTHRITIS
     Dosage: 200 MG, 1 IN 1 DAY, INTRAVENOUS
     Route: 042
     Dates: start: 20000629
  2. INFLIXIMAB (INFLIXIMAB, RECOMBINANT) [Suspect]
     Indication: JUVENILE ARTHRITIS
     Dosage: 200 MG, 1 IN 1 DAY, INTRAVENOUS
     Route: 042
     Dates: start: 20000713
  3. NAPROXEN [Suspect]
     Indication: DRUG USE FOR UNKNOWN INDICATION
     Dosage: 550 MG, 2 IN 1 DAY
  4. SULFAMETHOXAZOLE [Suspect]
     Indication: ANTIBACTERIAL PROPHYLAXIS
     Dosage: 400 MG, IN 1 DAY
  5. PREDNISONE [Concomitant]
  6. TRIMETHOPRIM [Concomitant]
  7. DEDROGYL (CALCIFEDIOL) [Concomitant]
  8. CALCIUM (CALCIUM) [Concomitant]
  9. EFFERALGAN CODEINE (PANADEINE CO) [Concomitant]
  10. CYCLOPHOSPHAMIDE [Concomitant]
  11. AZATHIOPRINE [Concomitant]

REACTIONS (18)
  - ACIDOSIS [None]
  - ANTINUCLEAR ANTIBODY POSITIVE [None]
  - COAGULATION FACTOR V LEVEL DECREASED [None]
  - COMA [None]
  - DERMATITIS EXFOLIATIVE [None]
  - ENCEPHALOPATHY [None]
  - GENERAL PHYSICAL HEALTH DETERIORATION [None]
  - HEPATIC ATROPHY [None]
  - HEPATIC FAILURE [None]
  - HEPATIC FIBROSIS [None]
  - HEPATIC NECROSIS [None]
  - HEPATITIS FULMINANT [None]
  - HEPATOTOXICITY [None]
  - HYPOTENSION [None]
  - LIVER TRANSPLANT [None]
  - PROTHROMBIN TIME PROLONGED [None]
  - PRURIGO [None]
  - PYREXIA [None]
